FAERS Safety Report 5927633-5 (Version None)
Quarter: 2008Q4

REPORT INFORMATION
  Report Type: 
  Country: None (occurrence: None)
  Receive Date: 20081023
  Receipt Date: 20081013
  Transmission Date: 20090506
  Serious: Yes (Death, Hospitalization)
  Sender: FDA-Public Use
  Company Number: US-ROCHE-586336

PATIENT
  Sex: Female
  Weight: 98 kg

DRUGS (1)
  1. CAPECITABINE [Suspect]
     Indication: BREAST CANCER
     Dosage: DOSAGE: 1500MG IN AM AND 1000MG IN PM
     Route: 065
     Dates: start: 20080306

REACTIONS (2)
  - DEATH [None]
  - RESPIRATORY DISORDER [None]
